FAERS Safety Report 8180368-3 (Version None)
Quarter: 2012Q1

REPORT INFORMATION
  Report Type: 
  Country: None (occurrence: None)
  Receive Date: 20120302
  Receipt Date: 20120229
  Transmission Date: 20120608
  Serious: Yes (Hospitalization)
  Sender: FDA-Public Use
  Company Number: IT-PFIZER INC-2012054937

PATIENT
  Age: 52 Year
  Sex: Female

DRUGS (2)
  1. ATENOLOL [Concomitant]
  2. SULFASALAZINE [Suspect]
     Indication: ARTHRALGIA
     Dosage: 2 DF, DAILY
     Route: 048
     Dates: start: 20111130

REACTIONS (3)
  - HYPERGLYCAEMIA [None]
  - POLYURIA [None]
  - ASTHENIA [None]
